FAERS Safety Report 16263477 (Version 4)
Quarter: 2020Q2

REPORT INFORMATION
  Report Type: Report from Study
  Country: CN (occurrence: CN)
  Receive Date: 20190502
  Receipt Date: 20200514
  Transmission Date: 20200713
  Serious: Yes (Life-Threatening, Hospitalization, Other)
  Sender: FDA-Public Use
  Company Number: CN-TAKEDA-2019TUS026155

PATIENT
  Age: 38 Year
  Sex: Male
  Weight: 79 kg

DRUGS (16)
  1. PREDNISONE ACETATE [Concomitant]
     Active Substance: PREDNISONE ACETATE
     Dosage: 25 MILLIGRAM, BID
     Route: 048
     Dates: start: 20190425, end: 20190509
  2. INSULIN NOVOLIN R [Concomitant]
     Dosage: 400 INTERNATIONAL UNIT
     Route: 058
     Dates: end: 2019
  3. OMEPRAZOLE. [Concomitant]
     Active Substance: OMEPRAZOLE
     Indication: GASTRITIS PROPHYLAXIS
     Dosage: 40 MILLIGRAM
     Route: 042
     Dates: end: 2019
  4. VEDOLIZUMAB [Suspect]
     Active Substance: VEDOLIZUMAB
     Indication: COLITIS ULCERATIVE
     Dosage: UNK
     Route: 042
     Dates: start: 20190118
  5. MESALAMINE. [Concomitant]
     Active Substance: MESALAMINE
     Indication: COLITIS ULCERATIVE
     Dosage: UNK UNK, QD
     Route: 048
     Dates: start: 201708
  6. IOPROMIDE. [Concomitant]
     Active Substance: IOPROMIDE
     Indication: COMPUTERISED TOMOGRAM ABNORMAL
     Dosage: 100 MILLILITER
     Dates: end: 2019
  7. AZATHIOPRINE. [Concomitant]
     Active Substance: AZATHIOPRINE
     Indication: COLITIS ULCERATIVE
     Dosage: 100 MILLIGRAM, QD
     Route: 048
     Dates: start: 201712, end: 20190821
  8. PREDNISONE. [Concomitant]
     Active Substance: PREDNISONE
     Indication: COLITIS ULCERATIVE
     Dosage: 15 MILLIGRAM, BID
     Route: 048
     Dates: start: 201806
  9. PANTOPRAZOLE SODIUM. [Concomitant]
     Active Substance: PANTOPRAZOLE SODIUM
     Indication: GASTRITIS PROPHYLAXIS
     Dosage: 40 MILLIGRAM
     Route: 048
     Dates: start: 20190425, end: 20190509
  10. IRON DEXTRAN INJECTION [Concomitant]
     Indication: MINERAL SUPPLEMENTATION
     Dosage: 100 MILLIGRAM
     Route: 042
     Dates: end: 2019
  11. LIDOCAINE HYDROCHLORIDE. [Concomitant]
     Active Substance: LIDOCAINE HYDROCHLORIDE
     Indication: ANAESTHESIA
     Dosage: 5 MILLILITER
     Dates: end: 2019
  12. IODIXANOL. [Concomitant]
     Active Substance: IODIXANOL
     Dosage: UNK
     Route: 042
     Dates: end: 2019
  13. ACETIC ACID. [Concomitant]
     Active Substance: ACETIC ACID
     Indication: COLITIS ULCERATIVE
     Dosage: 40 MILLIGRAM, TID
     Route: 048
     Dates: start: 201810
  14. WATER FOR INJECTION [Concomitant]
     Active Substance: WATER
     Indication: DRUG THERAPY
     Dosage: 5 MILLILITER
     Route: 042
     Dates: end: 2019
  15. AZATHIOPRINE. [Concomitant]
     Active Substance: AZATHIOPRINE
     Indication: CROHN^S DISEASE
     Dosage: UNK
     Dates: start: 20190826
  16. BETAMETHASONE SODIUM PHOSPHATE [Concomitant]
     Active Substance: BETAMETHASONE SODIUM PHOSPHATE
     Dosage: 4 MILLIGRAM, QD
     Route: 042
     Dates: end: 2019

REACTIONS (1)
  - Pulmonary embolism [Not Recovered/Not Resolved]

NARRATIVE: CASE EVENT DATE: 20190424
